FAERS Safety Report 21556521 (Version 2)
Quarter: 2023Q2

REPORT INFORMATION
  Report Type: Spontaneous
  Country: US (occurrence: US)
  Receive Date: 20221104
  Receipt Date: 20230516
  Transmission Date: 20230722
  Serious: No
  Sender: FDA-Public Use
  Company Number: US-ANIPHARMA-2022-US-025104

PATIENT
  Age: 45 Year
  Sex: Male

DRUGS (1)
  1. CORTICOTROPIN [Suspect]
     Active Substance: CORTICOTROPIN
     Indication: Nephrotic syndrome
     Dosage: 80 UNITS TWICE A WEEK SUBCUTANEOUSLY
     Route: 058
     Dates: start: 202207

REACTIONS (2)
  - Peripheral swelling [Unknown]
  - Rash [Unknown]
